FAERS Safety Report 22526658 (Version 2)
Quarter: 2023Q2

REPORT INFORMATION
  Report Type: Spontaneous
  Country: JP (occurrence: JP)
  Receive Date: 20230606
  Receipt Date: 20230622
  Transmission Date: 20230721
  Serious: Yes (Other)
  Sender: FDA-Public Use
  Company Number: JP-PFIZER INC-PV202300097387

PATIENT
  Age: 43 Year
  Sex: Female

DRUGS (7)
  1. PREMARIN [Suspect]
     Active Substance: ESTROGENS, CONJUGATED
     Indication: Endometriosis
     Dosage: 0.625 MG, 1X/DAY
     Route: 048
     Dates: start: 20220217, end: 20230514
  2. PROGESTERONE [Suspect]
     Active Substance: PROGESTERONE
     Dosage: 100 MG, 1X/DAY
     Route: 048
     Dates: start: 20220217, end: 20230514
  3. MITICURE [Concomitant]
     Active Substance: DERMATOPHAGOIDES FARINAE\DERMATOPHAGOIDES PTERONYSSINUS
     Indication: Mite allergy
     Dosage: 3300 JAU, 1X/DAY
     Dates: start: 20210708
  4. MITICURE [Concomitant]
     Active Substance: DERMATOPHAGOIDES FARINAE\DERMATOPHAGOIDES PTERONYSSINUS
     Dosage: 10000 JAU, 1X/DAY
  5. CRYPTOMERIA JAPONICA POLLEN [Concomitant]
     Active Substance: CRYPTOMERIA JAPONICA POLLEN
     Indication: Seasonal allergy
     Dosage: 2000 JAU, 1X/DAY
     Dates: start: 20190604
  6. CRYPTOMERIA JAPONICA POLLEN [Concomitant]
     Active Substance: CRYPTOMERIA JAPONICA POLLEN
     Dosage: 5000 JAU, 1X/DAY
     Route: 048
     Dates: end: 20221111
  7. BROTIZOLAM [Concomitant]
     Active Substance: BROTIZOLAM
     Indication: Insomnia
     Dosage: 0.25 MG, 1X/DAY
     Route: 048

REACTIONS (1)
  - Thrombosis [Unknown]

NARRATIVE: CASE EVENT DATE: 20230515
